FAERS Safety Report 12081454 (Version 1)
Quarter: 2016Q1

REPORT INFORMATION
  Report Type: Spontaneous
  Country: US (occurrence: US)
  Receive Date: 20160216
  Receipt Date: 20160216
  Transmission Date: 20160526
  Serious: Yes (Other)
  Sender: FDA-Public Use
  Company Number: US-B.I. PHARMACEUTICALS,INC./RIDGEFIELD-2016-BI-07720BP

PATIENT
  Age: 72 Year
  Sex: Female
  Weight: 53.98 kg

DRUGS (6)
  1. GILOTRIF [Suspect]
     Active Substance: AFATINIB
     Dosage: 30 MG
     Route: 048
     Dates: start: 201508, end: 20160205
  2. ASPIRIN. [Concomitant]
     Active Substance: ASPIRIN
     Indication: CARDIOMYOPATHY
     Dosage: 81 MG
     Route: 048
  3. CAPTOPRIL. [Concomitant]
     Active Substance: CAPTOPRIL
     Indication: CARDIOMYOPATHY
     Dosage: 50 MG
     Route: 048
     Dates: start: 1988
  4. DIGOXIN. [Concomitant]
     Active Substance: DIGOXIN
     Indication: CARDIOMYOPATHY
     Dosage: 0.125 MG
     Route: 048
  5. GILOTRIF [Suspect]
     Active Substance: AFATINIB
     Indication: NON-SMALL CELL LUNG CANCER METASTATIC
     Dosage: 40 MG
     Route: 048
     Dates: start: 201508, end: 201508
  6. ATENOLOL. [Concomitant]
     Active Substance: ATENOLOL
     Indication: CARDIOMYOPATHY
     Dosage: 25 MG
     Route: 048

REACTIONS (3)
  - Lung neoplasm malignant [Not Recovered/Not Resolved]
  - Dehydration [Recovered/Resolved]
  - Diarrhoea [Recovered/Resolved]

NARRATIVE: CASE EVENT DATE: 201508
